FAERS Safety Report 13996710 (Version 1)
Quarter: 2017Q3

REPORT INFORMATION
  Report Type: Spontaneous
  Country: US (occurrence: US)
  Receive Date: 20170921
  Receipt Date: 20170921
  Transmission Date: 20171128
  Serious: No
  Sender: FDA-Public Use
  Company Number: US-ALLERGAN-1734586US

PATIENT
  Age: 81 Year
  Sex: Female

DRUGS (3)
  1. VIBERZI [Suspect]
     Active Substance: ELUXADOLINE
     Indication: DIARRHOEA
     Dosage: 75 MG, BID
     Route: 048
     Dates: start: 2017
  2. PROAIR HFA [Concomitant]
     Active Substance: ALBUTEROL SULFATE
     Indication: CHRONIC OBSTRUCTIVE PULMONARY DISEASE
  3. VIBERZI [Suspect]
     Active Substance: ELUXADOLINE
     Indication: ABDOMINAL DISCOMFORT
     Dosage: 75 MG, QD
     Route: 048
     Dates: start: 201708

REACTIONS (4)
  - Wrong technique in product usage process [Unknown]
  - Off label use [Unknown]
  - Vomiting [Unknown]
  - Inappropriate schedule of drug administration [Unknown]

NARRATIVE: CASE EVENT DATE: 201708
